FAERS Safety Report 10238738 (Version 1)
Quarter: 2014Q2

REPORT INFORMATION
  Report Type: Report from Study
  Country: US (occurrence: US)
  Receive Date: 20140616
  Receipt Date: 20140616
  Transmission Date: 20141212
  Serious: Yes (Other)
  Sender: FDA-Public Use
  Company Number: US-JNJFOC-20140606292

PATIENT
  Age: 67 Year
  Sex: Female
  Weight: 85.73 kg

DRUGS (18)
  1. REMICADE [Suspect]
     Indication: ARTHRITIS
     Route: 042
     Dates: start: 20131227
  2. REMICADE [Suspect]
     Indication: ARTHRITIS
     Dosage: 3RD INFUSION
     Route: 042
     Dates: start: 2014
  3. REMICADE [Suspect]
     Indication: ARTHRITIS
     Dosage: 4 TH INFUSION
     Route: 042
     Dates: start: 201405
  4. PREDNISONE [Suspect]
     Indication: CELLULITIS
     Route: 065
     Dates: start: 2014
  5. PREDNISONE [Suspect]
     Indication: CELLULITIS
     Route: 065
     Dates: start: 2014
  6. PREDNISONE [Suspect]
     Indication: BRONCHITIS
     Route: 065
     Dates: start: 2014
  7. PREDNISONE [Suspect]
     Indication: BRONCHITIS
     Route: 065
     Dates: start: 2014
  8. PREDNISONE [Suspect]
     Indication: RESPIRATORY DISORDER
     Route: 065
     Dates: start: 2014
  9. PREDNISONE [Suspect]
     Indication: RESPIRATORY DISORDER
     Route: 065
     Dates: start: 2014
  10. BENADRYL [Suspect]
     Indication: PREMEDICATION
     Route: 042
     Dates: start: 201405, end: 201405
  11. METHOTREXATE [Concomitant]
     Indication: ARTHRITIS
     Route: 048
     Dates: start: 2013
  12. LEUCOVORIN CALCIUM [Concomitant]
     Indication: NAUSEA
     Dosage: 4 HOURS AFTER METHOTREXATE.
     Route: 065
     Dates: start: 20130413
  13. FOLIC ACID [Concomitant]
     Indication: VITAMIN SUPPLEMENTATION
     Route: 048
     Dates: start: 20120404
  14. HCTZ [Concomitant]
     Indication: BLOOD PRESSURE
     Route: 048
     Dates: start: 201309
  15. COZAAR [Concomitant]
     Indication: BLOOD PRESSURE
     Route: 048
     Dates: start: 201402
  16. LISINOPRIL [Concomitant]
     Indication: BLOOD PRESSURE
     Route: 048
     Dates: start: 201309, end: 20140226
  17. TRAMADOL [Concomitant]
     Indication: PAIN
     Dosage: 1-2 TABLETS AS NEEDED
     Route: 048
     Dates: start: 20120424
  18. CORTISONE [Concomitant]
     Indication: PREMEDICATION
     Route: 065

REACTIONS (8)
  - Respiratory depression [Recovered/Resolved]
  - Infusion related reaction [Recovered/Resolved]
  - Weight increased [Not Recovered/Not Resolved]
  - Bronchitis [Recovered/Resolved]
  - Flushing [Recovered/Resolved]
  - Ocular hyperaemia [Recovered/Resolved]
  - Cellulitis [Recovered/Resolved]
  - Somnolence [Recovered/Resolved]
